FAERS Safety Report 7057411-8 (Version None)
Quarter: 2010Q4

REPORT INFORMATION
  Report Type: 
  Country: None (occurrence: None)
  Receive Date: 20101022
  Receipt Date: 20101015
  Transmission Date: 20110411
  Serious: Yes (Hospitalization, Other)
  Sender: FDA-Public Use
  Company Number: DE-ABBOTT-10P-062-0669077-00

PATIENT
  Sex: Male
  Weight: 110 kg

DRUGS (4)
  1. HUMIRA [Suspect]
     Indication: PSORIASIS
  2. HUMIRA [Suspect]
     Route: 058
     Dates: start: 20101014
  3. GLUCOCORTICOIDS [Concomitant]
     Indication: PRODUCT USED FOR UNKNOWN INDICATION
     Dates: start: 20100122
  4. VITAMIN D-ANALOGA [Concomitant]
     Indication: PSORIASIS
     Dates: start: 20100122

REACTIONS (3)
  - GASTROENTERITIS VIRAL [None]
  - LIMB INJURY [None]
  - LIMB TRAUMATIC AMPUTATION [None]
